FAERS Safety Report 14594593 (Version 1)
Quarter: 2018Q1

REPORT INFORMATION
  Report Type: Spontaneous
  Country: US (occurrence: US)
  Receive Date: 20180302
  Receipt Date: 20180302
  Transmission Date: 20180509
  Serious: No
  Sender: FDA-Public Use
  Company Number: US-PERRIGO-17US024383

PATIENT
  Sex: Female

DRUGS (3)
  1. IBUPROFEN. [Suspect]
     Active Substance: IBUPROFEN
     Indication: HEADACHE
     Dosage: UNKNOWN, PRN
     Route: 048
     Dates: start: 2015, end: 201706
  2. IBUPROFEN. [Suspect]
     Active Substance: IBUPROFEN
     Dosage: UNKNOWN, SINGLE
     Route: 048
     Dates: start: 201706, end: 201706
  3. IBUPROFEN. [Suspect]
     Active Substance: IBUPROFEN
     Dosage: UNKNOWN, SINGLE
     Route: 048
     Dates: start: 201706, end: 201706

REACTIONS (3)
  - Swollen tongue [Unknown]
  - Drug administered to patient of inappropriate age [Recovered/Resolved]
  - Oral pruritus [Unknown]

NARRATIVE: CASE EVENT DATE: 2015
